FAERS Safety Report 7530219-2 (Version None)
Quarter: 2011Q2

REPORT INFORMATION
  Report Type: 
  Country: None (occurrence: None)
  Receive Date: 20110607
  Receipt Date: 20110530
  Transmission Date: 20111010
  Serious: Yes (Hospitalization)
  Sender: FDA-Public Use
  Company Number: PHHY2011US46382

PATIENT
  Age: 54 Year
  Sex: Female
  Weight: 156 kg

DRUGS (15)
  1. ASPIRIN [Concomitant]
     Dosage: 81 MG, DAILY
  2. PROPOFOL [Concomitant]
     Dosage: 200 MG, UNK
  3. SUCCINYLCHOLINE CHLORIDE [Suspect]
     Indication: ENDOTRACHEAL INTUBATION
     Dosage: 160 MG, (1MG/KG)
     Route: 042
  4. ATENOLOL [Concomitant]
     Dosage: 50 MG, DAILY
  5. NAPROXEN SODIUM [Concomitant]
     Indication: PAIN
     Dosage: 220 MG, PRN
  6. ATORVASTATIN [Concomitant]
     Dosage: 40 MG, UNK
  7. HYDROCHLOROTHIAZIDE W/VALSARTAN [Concomitant]
     Dosage: 32025 UNK, UNK
  8. FUROSEMIDE [Concomitant]
     Dosage: 40 MG, DAILY
  9. CLONIDINE [Concomitant]
     Dosage: 0.2 MG, TID
  10. MECLIZINE [Concomitant]
     Dosage: 25 MG, DAILY
  11. TIGECYCLINE [Concomitant]
     Dosage: 100 MG, UNK
     Route: 042
  12. ENALAPRIL MALEATE [Concomitant]
     Dosage: 20 MG, BID
  13. EZETIMIBE [Concomitant]
     Dosage: 10 MG, UNK
  14. FEXOFENADINE [Concomitant]
     Dosage: 180 MG,  DAILY
  15. POTASSIUM CHLORIDE [Concomitant]
     Dosage: 20 MEQ, DAILU

REACTIONS (6)
  - RESPIRATION ABNORMAL [None]
  - ALTERED STATE OF CONSCIOUSNESS [None]
  - PARALYSIS [None]
  - UNRESPONSIVE TO STIMULI [None]
  - PSEUDOCHOLINESTERASE DEFICIENCY [None]
  - APNOEA [None]
